FAERS Safety Report 14783084 (Version 2)
Quarter: 2018Q2

REPORT INFORMATION
  Report Type: Spontaneous
  Country: US (occurrence: US)
  Receive Date: 20180420
  Receipt Date: 20180615
  Transmission Date: 20180711
  Serious: Yes (Congenital Anomaly, Other)
  Sender: FDA-Public Use
  Company Number: PHEH2018US014551

PATIENT

DRUGS (1)
  1. ZOFRAN ODT [Suspect]
     Active Substance: ONDANSETRON HYDROCHLORIDE
     Indication: FOETAL EXPOSURE DURING PREGNANCY
     Dosage: MOTHER DOSE: 08 MG, BID
     Route: 064

REACTIONS (9)
  - Scar [Unknown]
  - Emotional distress [Unknown]
  - Deformity [Unknown]
  - Injury [Unknown]
  - Cleft lip and palate [Unknown]
  - Foetal exposure during pregnancy [Unknown]
  - Anhedonia [Unknown]
  - Speech disorder [Unknown]
  - Pain [Unknown]
